FAERS Safety Report 8839371 (Version 1)
Quarter: 2012Q4

REPORT INFORMATION
  Report Type: Spontaneous
  Country: US (occurrence: None)
  Receive Date: 20121012
  Receipt Date: 20121012
  Transmission Date: 20130627
  Serious: Yes (Congenital Anomaly)
  Sender: FDA-Public Use
  Company Number: None

PATIENT
  Age: 30 Year
  Sex: Female

DRUGS (2)
  1. CLOMIPRAMINE [Suspect]
     Dosage: Anafranil 200MG QD PO
     Route: 048
     Dates: start: 201110, end: 201207
  2. ANAFRANIL [Suspect]
     Route: 048

REACTIONS (3)
  - Pregnancy [None]
  - Exposure during pregnancy [None]
  - Abortion induced [None]
